FAERS Safety Report 18680263 (Version 2)
Quarter: 2021Q1

REPORT INFORMATION
  Report Type: Spontaneous
  Country: BR (occurrence: BR)
  Receive Date: 20201229
  Receipt Date: 20210107
  Transmission Date: 20210419
  Serious: Yes (Other)
  Sender: FDA-Public Use
  Company Number: BR-SA-2020SA356661

PATIENT

DRUGS (10)
  1. LANTUS [Suspect]
     Active Substance: INSULIN GLARGINE
     Dosage: 15 IU, BID (MORNING AND NIGHT)
     Route: 058
  2. DONAREN [Concomitant]
     Active Substance: TRAZODONE HYDROCHLORIDE
     Indication: DEPRESSION
  3. VELIJA [Concomitant]
     Active Substance: DULOXETINE HYDROCHLORIDE
     Indication: INSOMNIA
  4. VELIJA [Concomitant]
     Active Substance: DULOXETINE HYDROCHLORIDE
     Indication: DEPRESSION
     Dosage: 1 DF, BID (MORNING AND NIGHT)
     Route: 065
     Dates: start: 2010
  5. ALPRAZOLAM. [Concomitant]
     Active Substance: ALPRAZOLAM
     Indication: DEPRESSION
  6. DONAREN [Concomitant]
     Active Substance: TRAZODONE HYDROCHLORIDE
     Indication: INSOMNIA
     Dosage: 1 DF, QD
     Route: 065
  7. LANTUS [Suspect]
     Active Substance: INSULIN GLARGINE
     Indication: DIABETES MELLITUS
     Dosage: 15 IU, QD (DAILY IN THE MORNING)
     Route: 058
     Dates: start: 2000
  8. ALPRAZOLAM. [Concomitant]
     Active Substance: ALPRAZOLAM
     Indication: INSOMNIA
     Dosage: 1 DF, QD
     Route: 065
  9. LANTUS [Suspect]
     Active Substance: INSULIN GLARGINE
     Dosage: 50 IU, QD
     Route: 058
  10. BENICAR ANLO [Concomitant]
     Active Substance: AMLODIPINE BESYLATE\OLMESARTAN MEDOXOMIL
     Indication: HYPERTENSION
     Dosage: 1 DF, QD
     Route: 065

REACTIONS (20)
  - Thyroidectomy [Unknown]
  - Multiple use of single-use product [Unknown]
  - Retinal haemorrhage [Unknown]
  - Bone density decreased [Recovered/Resolved]
  - Vascular compression [Recovered/Resolved]
  - Off label use [Unknown]
  - Malaise [Unknown]
  - Parkinson^s disease [Unknown]
  - Immune system disorder [Unknown]
  - Blood glucose increased [Unknown]
  - Diarrhoea [Recovered/Resolved]
  - Intervertebral disc protrusion [Recovered/Resolved]
  - Tinnitus [Unknown]
  - Hypoglycaemia [Unknown]
  - Stress [Unknown]
  - Dizziness [Unknown]
  - Hyperhidrosis [Unknown]
  - Bipolar disorder [Unknown]
  - Foot fracture [Recovered/Resolved]
  - Expired device used [Unknown]

NARRATIVE: CASE EVENT DATE: 2015
